FAERS Safety Report 10574963 (Version 1)
Quarter: 2014Q4

REPORT INFORMATION
  Report Type: Spontaneous
  Country: US (occurrence: US)
  Receive Date: 20141111
  Receipt Date: 20141111
  Transmission Date: 20150529
  Serious: Yes (Other)
  Sender: FDA-Public Use
  Company Number: US-ABBVIE-14P-163-1303968-00

PATIENT
  Age: 57 Year
  Sex: Male
  Weight: 108 kg

DRUGS (15)
  1. LYRICA [Suspect]
     Active Substance: PREGABALIN
     Indication: FIBROMYALGIA
     Route: 048
     Dates: start: 20141008, end: 20141015
  2. SINGULAIR [Concomitant]
     Active Substance: MONTELUKAST SODIUM
     Indication: DYSPNOEA
  3. HUMIRA [Suspect]
     Active Substance: ADALIMUMAB
     Indication: PRODUCT USED FOR UNKNOWN INDICATION
     Route: 065
  4. ASPIRIN. [Concomitant]
     Active Substance: ASPIRIN
     Indication: PRODUCT USED FOR UNKNOWN INDICATION
     Route: 048
  5. ENBREL [Suspect]
     Active Substance: ETANERCEPT
     Indication: RHEUMATOID ARTHRITIS
     Dosage: IN STOMACH, EVERY WEDNESDAY
     Route: 065
  6. NAPROXEN. [Concomitant]
     Active Substance: NAPROXEN
     Indication: PAIN
     Route: 048
  7. FOLIC ACID. [Concomitant]
     Active Substance: FOLIC ACID
     Indication: PRODUCT USED FOR UNKNOWN INDICATION
     Route: 048
  8. SYMBICORT [Concomitant]
     Active Substance: BUDESONIDE\FORMOTEROL FUMARATE DIHYDRATE
     Indication: DYSPNOEA
     Dosage: 160/4.5 MCG, IN THE LUNGS
  9. PROVENTIL [Concomitant]
     Active Substance: ALBUTEROL
     Indication: INHALATION THERAPY
  10. MICROZIDE [Concomitant]
     Active Substance: HYDROCHLOROTHIAZIDE
     Indication: PRODUCT USED FOR UNKNOWN INDICATION
     Route: 048
  11. METHOTREXATE PFIZER [Concomitant]
     Indication: RHEUMATOID ARTHRITIS
     Dosage: ON SATURDAY, IN STOMACH
  12. NORVASC [Concomitant]
     Active Substance: AMLODIPINE BESYLATE
     Indication: HYPERTENSION
     Route: 048
  13. SPIRIVA [Concomitant]
     Active Substance: TIOTROPIUM BROMIDE MONOHYDRATE
     Indication: DYSPNOEA
     Route: 055
  14. SINGULAIR [Concomitant]
     Active Substance: MONTELUKAST SODIUM
     Indication: DYSPNOEA
     Dosage: EACH NIGHT
     Route: 048
  15. PROZAC [Concomitant]
     Active Substance: FLUOXETINE HYDROCHLORIDE
     Indication: DEPRESSION
     Route: 048

REACTIONS (8)
  - Hypersensitivity vasculitis [Not Recovered/Not Resolved]
  - Fibromyalgia [Not Recovered/Not Resolved]
  - Anger [Not Recovered/Not Resolved]
  - Dementia Alzheimer^s type [Unknown]
  - Drug dose omission [Not Recovered/Not Resolved]
  - Injection site pruritus [Unknown]
  - Pain [Not Recovered/Not Resolved]
  - Injection site erythema [Unknown]

NARRATIVE: CASE EVENT DATE: 201404
